FAERS Safety Report 24429207 (Version 3)
Quarter: 2024Q4

REPORT INFORMATION
  Report Type: Spontaneous
  Country: US (occurrence: US)
  Receive Date: 20241011
  Receipt Date: 20241107
  Transmission Date: 20250114
  Serious: No
  Sender: BRISTOL-MYERS SQUIBB COMPANY
  Company Number: US-BRISTOL-MYERS SQUIBB COMPANY-2024-160720

PATIENT
  Age: 73 Year
  Sex: Female

DRUGS (13)
  1. REVLIMID [Suspect]
     Active Substance: LENALIDOMIDE
     Indication: Plasma cell myeloma
     Route: 048
     Dates: start: 202205
  2. VELCADE [Suspect]
     Active Substance: BORTEZOMIB
     Indication: Plasma cell myeloma
  3. DEXAMETHASONE [Suspect]
     Active Substance: DEXAMETHASONE
     Indication: Plasma cell myeloma
  4. PREMARIN [Concomitant]
     Active Substance: ESTROGENS, CONJUGATED
     Indication: Menopause
     Dosage: ONCE Q3-4D
     Dates: start: 202208
  5. HERBALS\TURMERIC [Concomitant]
     Active Substance: HERBALS\TURMERIC
     Indication: Product used for unknown indication
  6. TRAMADOL [Concomitant]
     Active Substance: TRAMADOL
     Indication: Pain
     Dates: start: 2022
  7. ASPIRIN [Concomitant]
     Active Substance: ASPIRIN
     Indication: Cardiac disorder
     Dates: start: 202208
  8. VITAMINS NOS [Concomitant]
     Active Substance: VITAMINS
     Indication: Product used for unknown indication
  9. ACYCLOVIR [Concomitant]
     Active Substance: ACYCLOVIR
     Indication: Product used for unknown indication
     Dates: start: 202205
  10. VITAMIN D3 [Concomitant]
     Active Substance: CHOLECALCIFEROL
     Indication: Product used for unknown indication
  11. VITAMIN K [Concomitant]
     Active Substance: PHYTONADIONE
     Indication: Product used for unknown indication
  12. ZOLEDRONIC ACID [Concomitant]
     Active Substance: ZOLEDRONIC ACID
     Indication: Bone disorder
     Route: 042
     Dates: start: 202205
  13. YEAST [Concomitant]
     Active Substance: YEAST
     Indication: Product used for unknown indication
     Route: 042

REACTIONS (1)
  - Brain fog [Unknown]

NARRATIVE: CASE EVENT DATE: 20240528
